FAERS Safety Report 9260301 (Version 2)
Quarter: 2013Q3

REPORT INFORMATION
  Report Type: Report from Study
  Country: BR (occurrence: BR)
  Receive Date: 20130429
  Receipt Date: 20130718
  Transmission Date: 20140515
  Serious: Yes (Other)
  Sender: FDA-Public Use
  Company Number: PHHY2013BR041137

PATIENT
  Sex: Female
  Weight: 65 kg

DRUGS (6)
  1. GILENYA [Suspect]
     Indication: MULTIPLE SCLEROSIS
     Dosage: 0.5 MG, QD
     Route: 048
     Dates: start: 20130405
  2. IUMI [Concomitant]
     Indication: CONTRACEPTION
  3. TRAMAL [Concomitant]
     Indication: HEADACHE
  4. NEOSALDINA [Concomitant]
     Indication: HEADACHE
  5. NARAMIG [Concomitant]
     Indication: HEADACHE
  6. PASSIFLORA INCARNATA [Concomitant]
     Indication: NERVOUSNESS
     Dosage: UNK

REACTIONS (5)
  - Hepatitis [Not Recovered/Not Resolved]
  - Transaminases abnormal [Not Recovered/Not Resolved]
  - Crying [Not Recovered/Not Resolved]
  - Feeling abnormal [Not Recovered/Not Resolved]
  - Asthenia [Not Recovered/Not Resolved]
